FAERS Safety Report 22607406 (Version 1)
Quarter: 2023Q2

REPORT INFORMATION
  Report Type: Report from Study
  Country: EG (occurrence: EG)
  Receive Date: 20230616
  Receipt Date: 20230616
  Transmission Date: 20230722
  Serious: Yes (Life-Threatening)
  Sender: FDA-Public Use
  Company Number: EG-BIOGEN-2023BI01206285

PATIENT
  Age: 39 Year
  Sex: Female
  Weight: 85 kg

DRUGS (2)
  1. TYSABRI [Suspect]
     Active Substance: NATALIZUMAB
     Indication: Multiple sclerosis
     Dosage: 300MG/15ML
     Route: 050
     Dates: start: 20230115
  2. PANADOL [Concomitant]
     Active Substance: ACETAMINOPHEN
     Indication: Product used for unknown indication
     Route: 050

REACTIONS (3)
  - Abortion spontaneous [Recovered/Resolved]
  - Maternal exposure during pregnancy [Recovered/Resolved]
  - Hormone level abnormal [Recovered/Resolved]

NARRATIVE: CASE EVENT DATE: 20230201
